FAERS Safety Report 8437773-7 (Version None)
Quarter: 2012Q2

REPORT INFORMATION
  Report Type: 
  Country: None (occurrence: None)
  Receive Date: 20120614
  Receipt Date: 20120404
  Transmission Date: 20120825
  Serious: No
  Sender: FDA-Public Use
  Company Number: US-AMGEN-USASP2012021762

PATIENT
  Sex: Male

DRUGS (2)
  1. PROLIA [Suspect]
     Indication: PRODUCT USED FOR UNKNOWN INDICATION
     Dosage: UNK
  2. SENSIPAR [Suspect]
     Indication: DIALYSIS
     Dosage: UNK UNK, QD

REACTIONS (2)
  - BLOOD PARATHYROID HORMONE ABNORMAL [None]
  - BLOOD CALCIUM ABNORMAL [None]
